FAERS Safety Report 10611591 (Version 1)
Quarter: 2014Q4

REPORT INFORMATION
  Report Type: Spontaneous
  Country: US (occurrence: US)
  Receive Date: 20141126
  Receipt Date: 20141126
  Transmission Date: 20150529
  Serious: No
  Sender: FDA-Public Use
  Company Number: US-BAYER-2014-173843

PATIENT
  Age: 21 Year
  Sex: Female

DRUGS (1)
  1. BEYAZ [Suspect]
     Active Substance: DROSPIRENONE\ETHINYL ESTRADIOL\LEVOMEFOLATE CALCIUM
     Indication: OVARIAN CYST RUPTURED
     Dosage: UNK
     Dates: start: 201409, end: 201410

REACTIONS (6)
  - Fatigue [Unknown]
  - Pain [None]
  - Headache [Unknown]
  - Dizziness [Unknown]
  - Product use issue [None]
  - Lethargy [Unknown]

NARRATIVE: CASE EVENT DATE: 201409
